FAERS Safety Report 5602405-X (Version None)
Quarter: 2008Q1

REPORT INFORMATION
  Report Type: 
  Country: None (occurrence: None)
  Receive Date: 20080125
  Receipt Date: 20080123
  Transmission Date: 20080703
  Serious: Yes (Hospitalization)
  Sender: FDA-Public Use
  Company Number: JP-ASTRAZENECA-2006AP06206

PATIENT
  Age: 21927 Day
  Sex: Male
  Weight: 68.7 kg

DRUGS (10)
  1. CRESTOR [Suspect]
     Indication: HYPERLIPIDAEMIA
     Route: 048
     Dates: start: 20061219, end: 20070311
  2. CRESTOR [Suspect]
     Route: 048
     Dates: start: 20070312, end: 20070610
  3. ASPIRIN [Concomitant]
     Indication: THROMBOSIS PROPHYLAXIS
     Route: 048
     Dates: start: 20061128, end: 20070608
  4. ASPIRIN [Concomitant]
     Route: 048
     Dates: start: 20070613
  5. ITOROL [Concomitant]
     Indication: ANGINA UNSTABLE
     Route: 048
     Dates: start: 20061129, end: 20070107
  6. SELOKEN [Concomitant]
     Indication: ANGINA UNSTABLE
     Route: 048
     Dates: start: 20061129, end: 20070608
  7. SELOKEN [Concomitant]
     Route: 048
     Dates: start: 20070613
  8. PLAVIX [Concomitant]
     Indication: THROMBOSIS PROPHYLAXIS
     Route: 048
     Dates: start: 20061213, end: 20070608
  9. PLAVIX [Concomitant]
     Route: 048
     Dates: start: 20070613
  10. LENDORMIN [Concomitant]
     Indication: INSOMNIA
     Route: 048
     Dates: start: 20061130

REACTIONS (2)
  - ANGINA PECTORIS [None]
  - PYREXIA [None]
